FAERS Safety Report 8186694-6 (Version None)
Quarter: 2012Q1

REPORT INFORMATION
  Report Type: 
  Country: None (occurrence: None)
  Receive Date: 20120306
  Receipt Date: 20120228
  Transmission Date: 20120608
  Serious: Yes (Life-Threatening, Hospitalization)
  Sender: FDA-Public Use
  Company Number: FR-PFIZER INC-2012058294

PATIENT
  Age: 74 Year
  Sex: Female

DRUGS (9)
  1. BIOCIDAN [Concomitant]
  2. POTASSIUM CHLORIDE [Concomitant]
     Dosage: 3 G, 1X/DAY
  3. DIGOXIN [Concomitant]
     Dosage: 0.25 MG, 1X/DAY
  4. PREVISCAN [Concomitant]
     Dosage: 10 MG, 1X/DAY
  5. RAMIPRIL [Concomitant]
     Dosage: 5 MG, 1X/DAY
     Dates: end: 20111114
  6. CORDARONE [Suspect]
     Indication: PRODUCT USED FOR UNKNOWN INDICATION
     Dosage: 200 MG, 1X/DAY
     Route: 048
     Dates: start: 20110901, end: 20111113
  7. ESIDRIX [Concomitant]
     Dosage: 12.5 MG, 1X/DAY
     Dates: end: 20111115
  8. FUROSEMIDE [Concomitant]
     Dosage: 80 MG, 1X/DAY
     Route: 048
     Dates: start: 20110901
  9. TIMOLOL MALEATE [Concomitant]
     Dosage: 0.25%, UNK
     Route: 047

REACTIONS (3)
  - LUNG NEOPLASM [None]
  - LUNG DISORDER [None]
  - NEUTROPENIA [None]
